FAERS Safety Report 6065094-9 (Version None)
Quarter: 2009Q1

REPORT INFORMATION
  Report Type: 
  Country: None (occurrence: None)
  Receive Date: 20090204
  Receipt Date: 20090130
  Transmission Date: 20090719
  Serious: Yes (Other)
  Sender: FDA-Public Use
  Company Number: FR-WYE-G02423908

PATIENT
  Sex: Female
  Weight: 50 kg

DRUGS (3)
  1. TORISEL [Suspect]
     Indication: RENAL CANCER METASTATIC
     Dosage: UNKNOWN
     Route: 042
     Dates: start: 20081017, end: 20081017
  2. AZANTAC [Concomitant]
     Indication: PREMEDICATION
     Dosage: UNKNOWN
     Dates: start: 20081017
  3. POLARAMINE [Concomitant]
     Indication: PREMEDICATION
     Dosage: UNKNOWN
     Dates: start: 20081017

REACTIONS (3)
  - ANAPHYLACTIC SHOCK [None]
  - FACIAL PALSY [None]
  - LARYNGOSPASM [None]
